FAERS Safety Report 14435390 (Version 2)
Quarter: 2018Q1

REPORT INFORMATION
  Report Type: Report from Study
  Country: BG (occurrence: BG)
  Receive Date: 20180125
  Receipt Date: 20180126
  Transmission Date: 20180509
  Serious: Yes (Death, Life-Threatening, Hospitalization, Other)
  Sender: FDA-Public Use
  Company Number: BG-B.I. PHARMACEUTICALS,INC./RIDGEFIELD-2018-12-000208

PATIENT
  Sex: Male
  Weight: 70 kg

DRUGS (5)
  1. CLONIDINE. [Suspect]
     Active Substance: CLONIDINE
     Indication: CEREBROVASCULAR ACCIDENT
     Dosage: DOSAGE FORM: UNSPECIFIED
     Route: 065
     Dates: start: 20170910, end: 20170910
  2. DARBEPOETIN ALFA [Suspect]
     Active Substance: DARBEPOETIN ALFA
     Indication: NEPHROGENIC ANAEMIA
     Route: 065
     Dates: start: 20170810
  3. DAPRODUSTAT [Suspect]
     Active Substance: DAPRODUSTAT
     Indication: NEPHROGENIC ANAEMIA
     Route: 065
     Dates: start: 20170810
  4. FUROSEMIDE. [Suspect]
     Active Substance: FUROSEMIDE
     Indication: HAEMORRHAGIC STROKE
     Route: 042
     Dates: start: 20170910, end: 20170910
  5. EPOETIN ALFA [Suspect]
     Active Substance: ERYTHROPOIETIN
     Indication: NEPHROGENIC ANAEMIA
     Route: 065
     Dates: start: 20170810

REACTIONS (2)
  - Hypertension [Fatal]
  - Haemorrhagic stroke [Fatal]

NARRATIVE: CASE EVENT DATE: 20170910
